FAERS Safety Report 13105524 (Version 1)
Quarter: 2017Q1

REPORT INFORMATION
  Report Type: Spontaneous
  Country: US (occurrence: US)
  Receive Date: 20170111
  Receipt Date: 20170111
  Transmission Date: 20170428
  Serious: Yes (Other)
  Sender: FDA-Public Use
  Company Number: US-INGENUS PHARMACEUTICALS NJ, LLC-ING201701-000004

PATIENT
  Age: 52 Year
  Sex: Female

DRUGS (1)
  1. CYPROHEPTADINE. [Suspect]
     Active Substance: CYPROHEPTADINE
     Indication: DECREASED APPETITE

REACTIONS (5)
  - Loss of consciousness [Recovered/Resolved]
  - Hypopituitarism [Unknown]
  - Product use issue [Unknown]
  - Condition aggravated [Unknown]
  - Somnolence [Unknown]
